FAERS Safety Report 5761922-2 (Version None)
Quarter: 2008Q2

REPORT INFORMATION
  Report Type: 
  Country: None (occurrence: None)
  Receive Date: 20080603
  Receipt Date: 20080522
  Transmission Date: 20081010
  Serious: Yes (Other)
  Sender: FDA-Public Use
  Company Number: MC200800232

PATIENT
  Age: 54 Year
  Sex: Female

DRUGS (7)
  1. ANGIOMAX [Suspect]
     Indication: PERCUTANEOUS CORONARY INTERVENTION
     Dosage: 11.2 ML, (5MG/ML) BOLUS, INTRAVENOUS, 26.2 ML,(5MG/ML) HR, INTRAVENOUS, 11.2 ML, BOLUS, INTRAVENOUS
     Route: 040
     Dates: start: 20080501, end: 20080501
  2. ANGIOMAX [Suspect]
     Indication: PERCUTANEOUS CORONARY INTERVENTION
     Dosage: 11.2 ML, (5MG/ML) BOLUS, INTRAVENOUS, 26.2 ML,(5MG/ML) HR, INTRAVENOUS, 11.2 ML, BOLUS, INTRAVENOUS
     Route: 040
     Dates: start: 20080501, end: 20080501
  3. ANGIOMAX [Suspect]
     Indication: PERCUTANEOUS CORONARY INTERVENTION
     Dosage: 11.2 ML, (5MG/ML) BOLUS, INTRAVENOUS, 26.2 ML,(5MG/ML) HR, INTRAVENOUS, 11.2 ML, BOLUS, INTRAVENOUS
     Route: 040
     Dates: start: 20080501, end: 20080501
  4. VERSED [Concomitant]
  5. FENTANYL [Concomitant]
  6. NITROGLYCERIN [Concomitant]
  7. PLAVIX [Concomitant]

REACTIONS (7)
  - CHEST PAIN [None]
  - COAGULATION TIME ABNORMAL [None]
  - HYPOTENSION [None]
  - PULMONARY OEDEMA [None]
  - RESPIRATORY DISTRESS [None]
  - THROMBOSIS [None]
  - VOMITING [None]
